FAERS Safety Report 8032471-6 (Version None)
Quarter: 2011Q4

REPORT INFORMATION
  Report Type: 
  Country: None (occurrence: None)
  Receive Date: 20111222
  Receipt Date: 20111219
  Transmission Date: 20120403
  Serious: Yes (Death, Hospitalization)
  Sender: FDA-Public Use
  Company Number: 2011SP048285

PATIENT
  Age: 75 Year
  Sex: Male

DRUGS (1)
  1. TICE BCG [Suspect]
     Indication: BLADDER TRANSITIONAL CELL CARCINOMA
     Dosage: INVES

REACTIONS (17)
  - HEADACHE [None]
  - BONE MARROW NECROSIS [None]
  - LETHARGY [None]
  - NIGHT SWEATS [None]
  - AORTIC ANEURYSM RUPTURE [None]
  - BOVINE TUBERCULOSIS [None]
  - BONE MARROW GRANULOMA [None]
  - DYSPNOEA [None]
  - PYREXIA [None]
  - HAEMOGLOBIN DECREASED [None]
  - INFLUENZA LIKE ILLNESS [None]
  - WEIGHT DECREASED [None]
  - SOFT TISSUE MASS [None]
  - PRODUCTIVE COUGH [None]
  - NAUSEA [None]
  - MYCOTIC ANEURYSM [None]
  - C-REACTIVE PROTEIN INCREASED [None]
